FAERS Safety Report 5281160-X (Version None)
Quarter: 2007Q1

REPORT INFORMATION
  Report Type: 
  Country: None (occurrence: None)
  Receive Date: 20070329
  Receipt Date: 20070320
  Transmission Date: 20070707
  Serious: Yes (Life-Threatening, Hospitalization)
  Sender: FDA-Public Use
  Company Number: BE-MERCK-0703BEL00012

PATIENT
  Age: 84 Year
  Sex: Male
  Weight: 55 kg

DRUGS (3)
  1. ZOCOR [Suspect]
     Indication: HYPERCHOLESTEROLAEMIA
     Route: 048
  2. BLOCADREN [Concomitant]
     Indication: HYPERTENSION
     Route: 048
  3. MODURETIC 5-50 [Concomitant]
     Indication: HYPERTENSION
     Route: 048

REACTIONS (3)
  - ATRIAL FIBRILLATION [None]
  - BLADDER DISORDER [None]
  - CARDIAC FAILURE [None]
